FAERS Safety Report 9171085 (Version 1)
Quarter: 2013Q1

REPORT INFORMATION
  Report Type: Report from Study
  Country: CO (occurrence: CO)
  Receive Date: 20130319
  Receipt Date: 20130319
  Transmission Date: 20140127
  Serious: Yes (Death)
  Sender: FDA-Public Use
  Company Number: CO-SANOFI-AVENTIS-2013SA027512

PATIENT
  Age: 79 Year
  Sex: Female

DRUGS (5)
  1. INSULIN GLARGINE [Suspect]
     Indication: DIABETES MELLITUS
     Route: 058
     Dates: end: 20121023
  2. ACETAMINOPHEN [Concomitant]
     Indication: PAIN
     Route: 048
  3. QUETIAPINE [Concomitant]
     Indication: SCHIZOPHRENIA
     Route: 048
  4. OMEPRAZOLE [Concomitant]
     Indication: PEPTIC ULCER
     Route: 048
  5. LEVOMEPROMAZINE [Concomitant]
     Indication: SCHIZOPHRENIA
     Route: 048

REACTIONS (1)
  - Acute myocardial infarction [Fatal]
